FAERS Safety Report 9707709 (Version 1)
Quarter: 2013Q4

REPORT INFORMATION
  Report Type: Spontaneous
  Country: US (occurrence: US)
  Receive Date: 20131125
  Receipt Date: 20131125
  Transmission Date: 20140711
  Serious: No
  Sender: FDA-Public Use
  Company Number: US-009507513-1311USA006421

PATIENT
  Sex: Female
  Weight: 55.5 kg

DRUGS (4)
  1. NUVARING [Suspect]
     Indication: MENORRHAGIA
     Dosage: UNK
     Route: 065
     Dates: start: 201306
  2. NUVARING [Suspect]
     Indication: HORMONE LEVEL ABNORMAL
  3. VITAMIN D (UNSPECIFIED) [Concomitant]
  4. VITAMINS (UNSPECIFIED) [Concomitant]

REACTIONS (3)
  - Therapeutic response unexpected [Unknown]
  - Device expulsion [Unknown]
  - Migraine [Recovered/Resolved]
